FAERS Safety Report 24438923 (Version 1)
Quarter: 2024Q4

REPORT INFORMATION
  Report Type: Spontaneous
  Country: TW (occurrence: TW)
  Receive Date: 20241015
  Receipt Date: 20241015
  Transmission Date: 20250115
  Serious: Yes (Other)
  Sender: R-PHARM US LLC
  Company Number: TW-R-PHARM US LLC-2024RPM00004

PATIENT
  Age: 60 Year
  Sex: Female

DRUGS (6)
  1. IXABEPILONE [Suspect]
     Active Substance: IXABEPILONE
     Indication: Chemotherapy
     Dosage: 50 MG, 3X/WEEK; INFUSION; 3 COURSES
  2. IXABEPILONE [Suspect]
     Active Substance: IXABEPILONE
     Indication: Invasive ductal breast carcinoma
  3. IXABEPILONE [Suspect]
     Active Substance: IXABEPILONE
     Indication: Metastases to lung
  4. CAPECITABINE [Concomitant]
     Active Substance: CAPECITABINE
     Indication: Chemotherapy
     Dosage: 1000 MG, 1X/DAY
  5. CAPECITABINE [Concomitant]
     Active Substance: CAPECITABINE
     Indication: Invasive ductal breast carcinoma
  6. CAPECITABINE [Concomitant]
     Active Substance: CAPECITABINE
     Indication: Metastases to lung

REACTIONS (1)
  - Delirium [Recovered/Resolved]
